FAERS Safety Report 20994535 (Version 1)
Quarter: 2022Q2

REPORT INFORMATION
  Report Type: Spontaneous
  Country: US (occurrence: None)
  Receive Date: 20220622
  Receipt Date: 20220622
  Transmission Date: 20220721
  Serious: No
  Sender: FDA-Public Use
  Company Number: None

PATIENT

DRUGS (3)
  1. HEPARIN [Suspect]
     Active Substance: HEPARIN SODIUM
  2. HEPARIN [Suspect]
     Active Substance: HEPARIN SODIUM
  3. EPIC [Suspect]
     Active Substance: BENZALKONIUM CHLORIDE

REACTIONS (3)
  - Wrong product stored [None]
  - Product commingling [None]
  - Product supply issue [None]
